FAERS Safety Report 4313325-5 (Version None)
Quarter: 2004Q1

REPORT INFORMATION
  Report Type: 
  Country: None (occurrence: None)
  Receive Date: 20040304
  Receipt Date: 20040224
  Transmission Date: 20041129
  Serious: Yes (Hospitalization, Other)
  Sender: FDA-Public Use
  Company Number: 2004012574

PATIENT
  Age: 58 Year
  Sex: Male
  Weight: 106.5953 kg

DRUGS (2)
  1. LIPITOR [Suspect]
     Indication: BLOOD CHOLESTEROL
     Dosage: 20 MG (DAILY), ORAL
     Route: 048
     Dates: end: 20040219
  2. VALSARTAN (VALSARTAN) [Concomitant]

REACTIONS (9)
  - BILE DUCT OBSTRUCTION [None]
  - CHROMATURIA [None]
  - DIARRHOEA [None]
  - FLATULENCE [None]
  - HEPATIC CYST [None]
  - JAUNDICE [None]
  - NAUSEA [None]
  - PANCREATIC NEOPLASM [None]
  - VISION BLURRED [None]
